FAERS Safety Report 10175800 (Version 1)
Quarter: 2014Q2

REPORT INFORMATION
  Report Type: Spontaneous
  Country: US (occurrence: US)
  Receive Date: 20140516
  Receipt Date: 20140516
  Transmission Date: 20141212
  Serious: Yes (Hospitalization, Other)
  Sender: FDA-Public Use
  Company Number: US-AMGEN-USASP2014034787

PATIENT
  Age: 62 Year
  Sex: Female

DRUGS (2)
  1. ENBREL [Suspect]
     Indication: PSORIATIC ARTHROPATHY
     Dosage: 50 MG, QWK
     Route: 065
     Dates: start: 20130826, end: 201310
  2. METHOTREXATE [Concomitant]
     Dosage: UNK
     Dates: start: 201304, end: 201310

REACTIONS (9)
  - Adverse drug reaction [Recovered/Resolved]
  - Respiratory arrest [Recovered/Resolved]
  - Oxygen saturation immeasurable [Recovered/Resolved]
  - Blood pressure immeasurable [Recovered/Resolved]
  - Loss of consciousness [Recovered/Resolved]
  - Dizziness [Recovered/Resolved]
  - Depressed level of consciousness [Recovered/Resolved]
  - Fall [Recovered/Resolved]
  - Blood blister [Recovered/Resolved]
